FAERS Safety Report 17866440 (Version 3)
Quarter: 2020Q3

REPORT INFORMATION
  Report Type: Report from Study
  Country: DE (occurrence: DE)
  Receive Date: 20200605
  Receipt Date: 20200702
  Transmission Date: 20201103
  Serious: Yes (Death)
  Sender: FDA-Public Use
  Company Number: DE-PFIZER INC-2020217320

PATIENT
  Age: 84 Year
  Sex: Male
  Weight: 97.2 kg

DRUGS (12)
  1. TAFAMIDIS [Suspect]
     Active Substance: TAFAMIDIS MEGLUMINE
     Indication: CARDIAC AMYLOIDOSIS
     Dosage: 61 MG, 1X/DAY
     Route: 048
     Dates: start: 20191104, end: 20200522
  2. GREEN TEA EXTRACT [Concomitant]
     Indication: AMYLOIDOSIS
     Dosage: UNK
     Dates: start: 20161207
  3. PRADAXA [Concomitant]
     Active Substance: DABIGATRAN ETEXILATE MESYLATE
     Indication: THROMBOSIS
     Dosage: UNK
     Dates: start: 20191217
  4. CHOLECALCIFEROL [Concomitant]
     Active Substance: CHOLECALCIFEROL
     Indication: VITAMIN D DEFICIENCY
     Dosage: UNK
     Dates: start: 20191009
  5. MACROGOL [Concomitant]
     Active Substance: POLYETHYLENE GLYCOLS
     Indication: CONSTIPATION
     Dosage: UNK
     Dates: start: 20190827
  6. TAMSULOSIN [Concomitant]
     Active Substance: TAMSULOSIN
     Indication: BENIGN PROSTATIC HYPERPLASIA
     Dosage: UNK
     Dates: start: 2012
  7. SPIRONOLACTONE. [Concomitant]
     Active Substance: SPIRONOLACTONE
     Indication: PROPHYLAXIS
     Dosage: UNK
     Dates: start: 20200512
  8. PRADAXA [Concomitant]
     Active Substance: DABIGATRAN ETEXILATE MESYLATE
     Indication: ATRIAL FIBRILLATION
  9. ALLOPURINOL. [Concomitant]
     Active Substance: ALLOPURINOL
     Indication: PAIN IN EXTREMITY
     Dosage: UNK
     Dates: start: 20191009
  10. ALLOPURINOL. [Concomitant]
     Active Substance: ALLOPURINOL
     Indication: HYPOURICAEMIA
  11. TORASEMID [Concomitant]
     Active Substance: TORSEMIDE
     Indication: PROPHYLAXIS
  12. TORASEMID [Concomitant]
     Active Substance: TORSEMIDE
     Indication: OEDEMA PERIPHERAL
     Dosage: UNK
     Dates: start: 20191009

REACTIONS (1)
  - Cardiac arrest [Fatal]

NARRATIVE: CASE EVENT DATE: 20200523
